FAERS Safety Report 4523533-6 (Version None)
Quarter: 2004Q4

REPORT INFORMATION
  Report Type: 
  Country: None (occurrence: None)
  Receive Date: 20041117
  Receipt Date: 20040802
  Transmission Date: 20050328
  Serious: Yes (Life-Threatening, Hospitalization)
  Sender: FDA-Public Use
  Company Number: DE-JNJFOC-20040800864

PATIENT
  Age: 70 Year
  Sex: Male

DRUGS (6)
  1. LEVOFLOXACIN [Suspect]
     Indication: PNEUMONIA
     Dosage: INTRAVENOUS
     Route: 042
     Dates: start: 20031218, end: 20031221
  2. LEVOFLOXACIN [Suspect]
     Indication: PNEUMONIA
     Dosage: 500 MG, INTRAVENOUS
     Route: 042
     Dates: start: 20031222, end: 20031222
  3. FLAGYL [Concomitant]
  4. TORADOL [Concomitant]
  5. MORPHINE SULFATE [Concomitant]
  6. HYDROMORPHONE HCL [Concomitant]

REACTIONS (2)
  - COLON CANCER RECURRENT [None]
  - SMALL INTESTINAL OBSTRUCTION [None]
